FAERS Safety Report 18219757 (Version 7)
Quarter: 2022Q2

REPORT INFORMATION
  Report Type: Report from Study
  Country: None (occurrence: US)
  Receive Date: 20200901
  Receipt Date: 20220413
  Transmission Date: 20220721
  Serious: Yes (Hospitalization, Other)
  Sender: FDA-Public Use
  Company Number: US-AKCEA THERAPEUTICS-2020IS001370

PATIENT
  Age: 71 Year
  Sex: Male
  Weight: 70.455 kg

DRUGS (27)
  1. TEGSEDI [Suspect]
     Active Substance: INOTERSEN SODIUM
     Indication: Hereditary neuropathic amyloidosis
     Route: 058
     Dates: start: 2018
  2. DEVICE [Suspect]
     Active Substance: DEVICE
  3. DICYCLOMINE HYDROCHLORIDE [Concomitant]
     Active Substance: DICYCLOMINE HYDROCHLORIDE
  4. NEXIUM [Concomitant]
     Active Substance: ESOMEPRAZOLE MAGNESIUM
  5. FOLIC ACID [Concomitant]
     Active Substance: FOLIC ACID
  6. AMLODIPINE BESYLATE [Concomitant]
     Active Substance: AMLODIPINE BESYLATE
  7. FINASTERIDE [Concomitant]
     Active Substance: FINASTERIDE
  8. NITROGLYCERIN [Concomitant]
     Active Substance: NITROGLYCERIN
     Route: 060
  9. FUROSEMIDE [Concomitant]
     Active Substance: FUROSEMIDE
  10. TEGSEDI [Suspect]
     Active Substance: INOTERSEN SODIUM
     Route: 058
  11. FINASTERIDE [Concomitant]
     Active Substance: FINASTERIDE
  12. ELIQUIS [Concomitant]
     Active Substance: APIXABAN
  13. PLAVIX [Concomitant]
     Active Substance: CLOPIDOGREL BISULFATE
  14. MINERALS\VITAMINS [Concomitant]
     Active Substance: MINERALS\VITAMINS
  15. OMEPRAZOLE [Concomitant]
     Active Substance: OMEPRAZOLE
  16. COMBIGAN [Concomitant]
     Active Substance: BRIMONIDINE TARTRATE\TIMOLOL MALEATE
  17. ZYRTEC [Concomitant]
     Active Substance: CETIRIZINE HYDROCHLORIDE
  18. LIPITOR [Concomitant]
     Active Substance: ATORVASTATIN CALCIUM
  19. MIDODRINE HYDROCHLORIDE [Concomitant]
     Active Substance: MIDODRINE HYDROCHLORIDE
  20. SPIRONOLACTONE [Concomitant]
     Active Substance: SPIRONOLACTONE
  21. LATANOPROST [Concomitant]
     Active Substance: LATANOPROST
  22. POTASSIUM CHLORIDE [Concomitant]
     Active Substance: POTASSIUM CHLORIDE
  23. JARDIANCE [Concomitant]
     Active Substance: EMPAGLIFLOZIN
  24. GABAPENTIN [Concomitant]
     Active Substance: GABAPENTIN
  25. FLUVOXAMINE MALEATE [Concomitant]
     Active Substance: FLUVOXAMINE MALEATE
  26. TORSEMIDE [Concomitant]
     Active Substance: TORSEMIDE
  27. FERROUS GLUCONATE [Concomitant]
     Active Substance: FERROUS GLUCONATE

REACTIONS (12)
  - Hospitalisation [Recovering/Resolving]
  - Fall [Not Recovered/Not Resolved]
  - Subdural haematoma [Not Recovered/Not Resolved]
  - Concussion [Not Recovered/Not Resolved]
  - Aspiration [Unknown]
  - Vomiting [Unknown]
  - Pulmonary oedema [Unknown]
  - Cardiac failure congestive [Unknown]
  - Gastrointestinal amyloidosis [Unknown]
  - Myocardial infarction [Unknown]
  - Drug ineffective [Unknown]
  - Arrhythmia [Unknown]

NARRATIVE: CASE EVENT DATE: 20200101
